FAERS Safety Report 4642653-9 (Version None)
Quarter: 2005Q2

REPORT INFORMATION
  Report Type: 
  Country: None (occurrence: None)
  Receive Date: 20050422
  Receipt Date: 20050413
  Transmission Date: 20051028
  Serious: Yes (Other)
  Sender: FDA-Public Use
  Company Number: GB-JNJFOC-20050403388

PATIENT
  Sex: Female

DRUGS (2)
  1. TOPAMAX [Suspect]
     Indication: EPILEPSY
     Route: 065
  2. PHENYTOIN [Concomitant]
     Indication: HYPERKALAEMIA
     Route: 065

REACTIONS (2)
  - DRUG INEFFECTIVE [None]
  - HYPERKALAEMIA [None]
